FAERS Safety Report 6916691-7 (Version None)
Quarter: 2010Q3

REPORT INFORMATION
  Report Type: 
  Country: None (occurrence: None)
  Receive Date: 20100810
  Receipt Date: 20100803
  Transmission Date: 20110219
  Serious: Yes (Disabling, Congenital Anomaly)
  Sender: FDA-Public Use
  Company Number: NL-B.I. PHARMACEUTICALS,INC./RIDGEFIELD-2010-NL-00291NL

PATIENT
  Sex: Female
  Weight: 3 kg

DRUGS (2)
  1. VIRAMUNE 200MG TABLETS [Suspect]
     Indication: DRUG EXPOSURE DURING PREGNANCY
     Route: 064
     Dates: start: 20091125, end: 20100521
  2. COMBIVIR [Suspect]
     Indication: DRUG EXPOSURE DURING PREGNANCY
     Route: 064
     Dates: start: 20091125, end: 20100521

REACTIONS (2)
  - LIMB MALFORMATION [None]
  - LIMB REDUCTION DEFECT [None]
